FAERS Safety Report 6981439-7 (Version None)
Quarter: 2010Q3

REPORT INFORMATION
  Report Type: 
  Country: None (occurrence: None)
  Receive Date: 20100909
  Receipt Date: 20100824
  Transmission Date: 20110219
  Serious: Yes (Disabling, Other)
  Sender: FDA-Public Use
  Company Number: ACO_01920_2010

PATIENT
  Sex: Female
  Weight: 81.6475 kg

DRUGS (6)
  1. AMPYRA [Suspect]
     Indication: GAIT DISTURBANCE
     Dosage: (10 MG BID ORAL)
     Route: 048
     Dates: start: 20100601, end: 20100826
  2. NEURONTIN [Concomitant]
  3. TOPROL [Concomitant]
  4. EVISTA [Concomitant]
  5. CALTRATE /00108001/ [Concomitant]
  6. SOLU-MEDROL [Concomitant]

REACTIONS (8)
  - ABASIA [None]
  - DIZZINESS [None]
  - FALL [None]
  - HEADACHE [None]
  - INSOMNIA [None]
  - PAIN IN EXTREMITY [None]
  - RASH ERYTHEMATOUS [None]
  - RASH PRURITIC [None]
